FAERS Safety Report 8971548 (Version 1)
Quarter: 2012Q4

REPORT INFORMATION
  Report Type: 
  Country: KR (occurrence: KR)
  Receive Date: 20121217
  Receipt Date: 20121217
  Transmission Date: 20130627
  Serious: Yes (Other)
  Sender: FDA-Public Use
  Company Number: KR-BAYER-2012-130566

PATIENT
  Sex: Male

DRUGS (2)
  1. ASPIRIN PROTECT [Suspect]
     Indication: THROMBOSIS PROPHYLAXIS
     Dosage: 2 pills a day (morning and evening) or 4-5 years
  2. ASPIRIN PROTECT [Suspect]
     Indication: FEELING UNWELL

REACTIONS (4)
  - Off label use [None]
  - Intentional drug misuse [None]
  - Incorrect drug administration duration [None]
  - Coagulopathy [None]
